FAERS Safety Report 5087513-7 (Version None)
Quarter: 2006Q3

REPORT INFORMATION
  Report Type: 
  Country: None (occurrence: None)
  Receive Date: 20060824
  Receipt Date: 20060407
  Transmission Date: 20061208
  Serious: Yes (Death, Hospitalization)
  Sender: FDA-Public Use
  Company Number: PE-GLAXOSMITHKLINE-A0601047A

PATIENT
  Age: 9 Year
  Sex: Male

DRUGS (1)
  1. LAMICTAL [Suspect]
     Indication: CONVULSION
     Dosage: 75MG UNKNOWN
     Route: 048
     Dates: start: 20060320, end: 20060402

REACTIONS (21)
  - BLISTER [None]
  - C-REACTIVE PROTEIN INCREASED [None]
  - CARDIAC ARREST [None]
  - CONJUNCTIVAL DISORDER [None]
  - HEPATOMEGALY [None]
  - HYPERSENSITIVITY [None]
  - METABOLIC ACIDOSIS [None]
  - MUCOUS MEMBRANE DISORDER [None]
  - MULTI-ORGAN FAILURE [None]
  - ORAL MUCOSAL BLISTERING [None]
  - OVERDOSE [None]
  - PHARYNGEAL LESION [None]
  - PYREXIA [None]
  - RASH [None]
  - RENAL DISORDER [None]
  - SHIFT TO THE LEFT [None]
  - SKIN EXFOLIATION [None]
  - SKIN LESION [None]
  - SKIN ULCER [None]
  - STOMATITIS [None]
  - TOXIC EPIDERMAL NECROLYSIS [None]
